FAERS Safety Report 8973913 (Version 1)
Quarter: 2012Q4

REPORT INFORMATION
  Report Type: 
  Country: NL (occurrence: NL)
  Receive Date: 20121218
  Receipt Date: 20121218
  Transmission Date: 20130627
  Serious: Yes (Hospitalization)
  Sender: FDA-Public Use
  Company Number: NL-GLAXOSMITHKLINE-B0852735A

PATIENT
  Age: 38 Year
  Sex: Female
  Weight: 85 kg

DRUGS (5)
  1. VENTOLIN [Suspect]
     Indication: DYSPNOEA
     Dosage: 200MCG Four times per day
     Route: 055
     Dates: start: 20121126, end: 20121202
  2. AMOXICILLINE [Concomitant]
     Indication: PRODUCT USED FOR UNKNOWN INDICATION
     Dosage: 500MG Three times per day
     Route: 048
     Dates: start: 20121123, end: 20121203
  3. NASONEX [Concomitant]
     Indication: PRODUCT USED FOR UNKNOWN INDICATION
     Dosage: 50MCG Twice per day
     Route: 045
     Dates: start: 20121123
  4. PARACETAMOL + CODEINE [Concomitant]
     Indication: PRODUCT USED FOR UNKNOWN INDICATION
     Route: 048
     Dates: start: 20121124, end: 20121202
  5. UNKNOWN MEDICATION [Concomitant]
     Indication: PRODUCT USED FOR UNKNOWN INDICATION
     Route: 065

REACTIONS (5)
  - Bronchospasm paradoxical [Recovering/Resolving]
  - Tachycardia [Recovering/Resolving]
  - Extrasystoles [Recovering/Resolving]
  - Dysgeusia [Recovering/Resolving]
  - Exposure during pregnancy [Unknown]
